FAERS Safety Report 13320688 (Version 3)
Quarter: 2017Q2

REPORT INFORMATION
  Report Type: Spontaneous
  Country: JP (occurrence: JP)
  Receive Date: 20170309
  Receipt Date: 20170503
  Transmission Date: 20170830
  Serious: Yes (Other)
  Sender: FDA-Public Use
  Company Number: JP-VIFOR (INTERNATIONAL) INC.-VIT-2017-02265

PATIENT
  Age: 70 Year
  Sex: Female

DRUGS (17)
  1. EPOETIN ALFA [Concomitant]
     Active Substance: ERYTHROPOIETIN
     Dates: start: 20170322
  2. MUCOSOLVAN [Concomitant]
     Active Substance: AMBROXOL HYDROCHLORIDE
     Route: 065
     Dates: start: 20160118
  3. MIRCERA [Suspect]
     Active Substance: METHOXY POLYETHYLENE GLYCOL-EPOETIN BETA
     Route: 042
     Dates: start: 20160909, end: 20161222
  4. EPOETIN ALFA [Concomitant]
     Active Substance: ERYTHROPOIETIN
     Dates: start: 20170130, end: 2017
  5. EPOETIN ALFA [Concomitant]
     Active Substance: ERYTHROPOIETIN
     Dates: start: 20170210, end: 2017
  6. FESIN [Concomitant]
     Active Substance: IRON SUCROSE
     Dosage: FOR 10 DAYS
     Dates: start: 20160914
  7. MIRCERA [Suspect]
     Active Substance: METHOXY POLYETHYLENE GLYCOL-EPOETIN BETA
     Route: 042
     Dates: start: 20161223
  8. CARDENALIN [Concomitant]
     Active Substance: DOXAZOSIN MESYLATE
     Route: 048
     Dates: start: 20121022
  9. REGPARA [Concomitant]
     Active Substance: CINACALCET HYDROCHLORIDE
     Route: 065
     Dates: start: 20130729
  10. NORVASC [Concomitant]
     Active Substance: AMLODIPINE BESYLATE
     Route: 065
     Dates: start: 20070514
  11. PLETAAL [Concomitant]
     Active Substance: CILOSTAZOL
     Route: 065
     Dates: start: 20160429
  12. MUCODYNE [Concomitant]
     Active Substance: CARBOCYSTEINE
     Route: 065
     Dates: start: 20160118
  13. NU-LOTAN [Concomitant]
     Active Substance: LOSARTAN POTASSIUM
     Route: 048
     Dates: start: 20040927
  14. FESIN [Concomitant]
     Active Substance: IRON SUCROSE
     Dates: start: 201611
  15. MIRCERA [Suspect]
     Active Substance: METHOXY POLYETHYLENE GLYCOL-EPOETIN BETA
     Indication: NEPHROGENIC ANAEMIA
     Route: 042
     Dates: start: 20120706, end: 20160908
  16. FOSRENOL [Concomitant]
     Active Substance: LANTHANUM CARBONATE
     Route: 048
     Dates: start: 20130605
  17. ROCALTROL [Concomitant]
     Active Substance: CALCITRIOL
     Route: 065
     Dates: start: 20130729

REACTIONS (5)
  - Anti-erythropoietin antibody [Recovered/Resolved]
  - Blood iron decreased [Unknown]
  - Hypophagia [Recovering/Resolving]
  - Haemoglobin decreased [Unknown]
  - Drug ineffective [Unknown]

NARRATIVE: CASE EVENT DATE: 201611
